FAERS Safety Report 16419119 (Version 3)
Quarter: 2019Q3

REPORT INFORMATION
  Report Type: Spontaneous
  Country: US (occurrence: US)
  Receive Date: 20190612
  Receipt Date: 20190718
  Transmission Date: 20191004
  Serious: Yes (Disabling, Other)
  Sender: FDA-Public Use
  Company Number: US-ASTRAZENECA-2018SF64795

PATIENT
  Age: 52 Year
  Sex: Female
  Weight: 92.1 kg

DRUGS (51)
  1. NEXIUM [Suspect]
     Active Substance: ESOMEPRAZOLE MAGNESIUM
     Indication: GASTRIC PH DECREASED
     Dosage: 40 MG DAILY
     Route: 048
     Dates: start: 2008, end: 2009
  2. NEXIUM 24HR [Suspect]
     Active Substance: ESOMEPRAZOLE MAGNESIUM
     Indication: GASTROOESOPHAGEAL REFLUX DISEASE
     Dosage: 20 MG DAILY
     Route: 048
     Dates: start: 2008, end: 2009
  3. PRILOSEC [Suspect]
     Active Substance: OMEPRAZOLE MAGNESIUM
     Indication: GASTROOESOPHAGEAL REFLUX DISEASE
     Dosage: 40 MG DAILY
     Route: 048
     Dates: start: 20140127, end: 20140927
  4. PRILOSEC [Suspect]
     Active Substance: OMEPRAZOLE MAGNESIUM
     Indication: GASTROOESOPHAGEAL REFLUX DISEASE
     Dosage: 40 MG DAILY GENERIC
     Route: 065
     Dates: start: 201004, end: 20180601
  5. PROTONIX [Suspect]
     Active Substance: PANTOPRAZOLE SODIUM
     Indication: GASTROOESOPHAGEAL REFLUX DISEASE
     Dosage: 40 MG DAILY
     Route: 065
     Dates: start: 201004, end: 20181008
  6. PREVACID [Suspect]
     Active Substance: LANSOPRAZOLE
     Indication: GASTROOESOPHAGEAL REFLUX DISEASE
     Route: 065
     Dates: start: 200001, end: 201405
  7. DEPAKOTE [Concomitant]
     Active Substance: DIVALPROEX SODIUM
  8. LEVEMIR [Concomitant]
     Active Substance: INSULIN DETEMIR
  9. DIAZEPAM. [Concomitant]
     Active Substance: DIAZEPAM
  10. NARCAN [Concomitant]
     Active Substance: NALOXONE HYDROCHLORIDE
  11. PRILOSEC [Suspect]
     Active Substance: OMEPRAZOLE MAGNESIUM
     Indication: GASTRIC PH DECREASED
     Route: 048
     Dates: start: 200001, end: 201405
  12. CITALOPRAM [Concomitant]
     Active Substance: CITALOPRAM HYDROBROMIDE
  13. SPIRONOLACTONE. [Concomitant]
     Active Substance: SPIRONOLACTONE
  14. DIPHENOXYLATE [Concomitant]
     Active Substance: DIPHENOXYLATE
  15. CHANTIX [Concomitant]
     Active Substance: VARENICLINE TARTRATE
  16. CARVEDILOL. [Concomitant]
     Active Substance: CARVEDILOL
  17. ASPIRIN. [Concomitant]
     Active Substance: ASPIRIN
  18. NEXIUM [Suspect]
     Active Substance: ESOMEPRAZOLE MAGNESIUM
     Indication: GASTROOESOPHAGEAL REFLUX DISEASE
     Route: 048
     Dates: start: 200001, end: 201405
  19. PRILOSEC [Suspect]
     Active Substance: OMEPRAZOLE MAGNESIUM
     Indication: GASTRIC PH DECREASED
     Dosage: 40 MG DAILY GENERIC
     Route: 065
     Dates: start: 201004, end: 20180601
  20. PREVACID [Suspect]
     Active Substance: LANSOPRAZOLE
     Indication: GASTROOESOPHAGEAL REFLUX DISEASE
     Dosage: 30 MG DAILY
     Route: 065
     Dates: start: 19950615, end: 20181011
  21. GEODON [Concomitant]
     Active Substance: ZIPRASIDONE HYDROCHLORIDE\ZIPRASIDONE MESYLATE
  22. NEXIUM [Suspect]
     Active Substance: ESOMEPRAZOLE MAGNESIUM
     Indication: GASTROOESOPHAGEAL REFLUX DISEASE
     Dosage: 40 MG DAILY
     Route: 048
     Dates: start: 2008, end: 2009
  23. NEXIUM 24HR [Suspect]
     Active Substance: ESOMEPRAZOLE MAGNESIUM
     Indication: GASTROOESOPHAGEAL REFLUX DISEASE
     Route: 048
     Dates: start: 200001, end: 201405
  24. NEXIUM 24HR [Suspect]
     Active Substance: ESOMEPRAZOLE MAGNESIUM
     Indication: GASTRIC PH DECREASED
     Dosage: 20 MG DAILY
     Route: 048
     Dates: start: 2008, end: 2009
  25. METFORMIN [Concomitant]
     Active Substance: METFORMIN HYDROCHLORIDE
  26. FUROSEMIDE. [Concomitant]
     Active Substance: FUROSEMIDE
  27. AMOXICILLIN. [Concomitant]
     Active Substance: AMOXICILLIN
  28. SELENIUM [Concomitant]
     Active Substance: SELENIUM
  29. PREVACID [Suspect]
     Active Substance: LANSOPRAZOLE
     Indication: GASTRIC PH INCREASED
     Route: 065
     Dates: start: 200001, end: 201405
  30. PREVACID [Suspect]
     Active Substance: LANSOPRAZOLE
     Indication: GASTRIC PH INCREASED
     Dosage: 30 MG DAILY
     Route: 065
     Dates: start: 19950615, end: 20181011
  31. TRAMADOL. [Concomitant]
     Active Substance: TRAMADOL
  32. CIMETIDINE [Concomitant]
     Active Substance: CIMETIDINE
  33. CIPROFLOXACIN. [Concomitant]
     Active Substance: CIPROFLOXACIN
  34. LORAZEPAM. [Concomitant]
     Active Substance: LORAZEPAM
  35. BENZTROPINE. [Concomitant]
     Active Substance: BENZTROPINE
  36. NOVOLIN [Concomitant]
     Active Substance: INSULIN HUMAN
  37. PRILOSEC [Suspect]
     Active Substance: OMEPRAZOLE MAGNESIUM
     Indication: GASTROOESOPHAGEAL REFLUX DISEASE
     Route: 048
     Dates: start: 200001, end: 201405
  38. OXYBUTYNIN. [Concomitant]
     Active Substance: OXYBUTYNIN CHLORIDE
  39. LITHIUM CARBONATE. [Concomitant]
     Active Substance: LITHIUM CARBONATE
  40. HYDROCODONE BITARTRATE AND ACETAMINOPHEN [Concomitant]
     Active Substance: ACETAMINOPHEN\HYDROCODONE BITARTRATE
  41. ALBUTEROL. [Concomitant]
     Active Substance: ALBUTEROL
  42. KLOR-CON [Concomitant]
     Active Substance: POTASSIUM CHLORIDE
  43. BUPROPION. [Concomitant]
     Active Substance: BUPROPION
  44. NEXIUM 24HR [Suspect]
     Active Substance: ESOMEPRAZOLE MAGNESIUM
     Indication: GASTRIC PH DECREASED
     Route: 048
     Dates: start: 200001, end: 201405
  45. GLIPIZIDE. [Concomitant]
     Active Substance: GLIPIZIDE
  46. SEROQUEL [Concomitant]
     Active Substance: QUETIAPINE FUMARATE
  47. PROPRANOLOL [Concomitant]
     Active Substance: PROPRANOLOL HYDROCHLORIDE
  48. NEXIUM [Suspect]
     Active Substance: ESOMEPRAZOLE MAGNESIUM
     Indication: GASTRIC PH DECREASED
     Route: 048
     Dates: start: 200001, end: 201405
  49. PRILOSEC [Suspect]
     Active Substance: OMEPRAZOLE MAGNESIUM
     Indication: GASTRIC PH DECREASED
     Dosage: 40 MG DAILY
     Route: 048
     Dates: start: 20140127, end: 20140927
  50. NAPROXEN. [Concomitant]
     Active Substance: NAPROXEN
  51. FLUCONAZOLE. [Concomitant]
     Active Substance: FLUCONAZOLE

REACTIONS (7)
  - Renal injury [Unknown]
  - End stage renal disease [Unknown]
  - Chronic kidney disease [Not Recovered/Not Resolved]
  - Dyspepsia [Unknown]
  - Tubulointerstitial nephritis [Unknown]
  - Acute kidney injury [Unknown]
  - Renal failure [Not Recovered/Not Resolved]

NARRATIVE: CASE EVENT DATE: 2014
